FAERS Safety Report 5036636-7 (Version None)
Quarter: 2006Q2

REPORT INFORMATION
  Report Type: 
  Country: None (occurrence: None)
  Receive Date: 20060628
  Receipt Date: 20060621
  Transmission Date: 20061013
  Serious: Yes (Hospitalization, Other)
  Sender: FDA-Public Use
  Company Number: IT-JNJFOC-20060603699

PATIENT

DRUGS (5)
  1. REOPRO [Suspect]
     Dosage: 4.0 ML IN 50 ML DILUENT AT 3.9 ML/HR, TOTAL INFUSION 46.0 ML.
     Route: 042
  2. REOPRO [Suspect]
     Indication: ACUTE MYOCARDIAL INFARCTION
     Route: 042
  3. RETEPLASE [Suspect]
     Indication: ACUTE MYOCARDIAL INFARCTION
     Route: 042
  4. HEPARIN [Concomitant]
  5. HEPARIN [Concomitant]

REACTIONS (2)
  - ARRHYTHMIA [None]
  - CORONARY ARTERY THROMBOSIS [None]
